FAERS Safety Report 4343444-9 (Version None)
Quarter: 2004Q2

REPORT INFORMATION
  Report Type: 
  Country: None (occurrence: None)
  Receive Date: 20040419
  Receipt Date: 20040412
  Transmission Date: 20050107
  Serious: No
  Sender: FDA-Public Use
  Company Number: 2004UW07280

PATIENT
  Age: 73 Year
  Sex: Female
  Weight: 58.9676 kg

DRUGS (2)
  1. ARIMIDEX [Suspect]
     Indication: BREAST CANCER
     Dosage: 1 MG QD
     Route: 048
     Dates: start: 20010701
  2. SYNTHROID [Concomitant]

REACTIONS (1)
  - ARTHROPATHY [None]
